FAERS Safety Report 26060229 (Version 1)
Quarter: 2025Q4

REPORT INFORMATION
  Report Type: Other
  Country: US (occurrence: US)
  Receive Date: 20251118
  Receipt Date: 20251118
  Transmission Date: 20260118
  Serious: Yes (Hospitalization)
  Sender: MISSION PHARMACAL COMPANY
  Company Number: US-Mission Pharmacal Company-2188786

PATIENT
  Age: 83 Year
  Sex: Male

DRUGS (3)
  1. POTASSIUM CITRATE [Suspect]
     Active Substance: POTASSIUM CITRATE
     Indication: Cystinuria
  2. POTASSIUM CITRATE [Suspect]
     Active Substance: POTASSIUM CITRATE
     Indication: Chronic kidney disease
  3. THIOLA EC [Concomitant]
     Active Substance: TIOPRONIN
     Dates: start: 20200206

REACTIONS (1)
  - Pneumonia [Unknown]
